FAERS Safety Report 5200425-0 (Version None)
Quarter: 2006Q4

REPORT INFORMATION
  Report Type: 
  Country: None (occurrence: None)
  Receive Date: 20061016
  Receipt Date: 20060726
  Transmission Date: 20070319
  Serious: No
  Sender: FDA-Public Use
  Company Number: 2006SP002804

PATIENT
  Age: 55 Year
  Sex: Female
  Weight: 109.3169 kg

DRUGS (5)
  1. LUNESTA [Suspect]
     Indication: SLEEP DISORDER
     Dosage: 3 MG;1X;ORAL
     Route: 048
     Dates: start: 20060725
  2. AMLODIPINE [Concomitant]
  3. PANTOPRAZOLE SODIUM [Concomitant]
  4. CELEXA [Concomitant]
  5. WATER PILLS [Concomitant]

REACTIONS (1)
  - DYSGEUSIA [None]
